APPROVED DRUG PRODUCT: DDAVP
Active Ingredient: DESMOPRESSIN ACETATE
Strength: 0.01%
Dosage Form/Route: SOLUTION;NASAL
Application: N017922 | Product #001
Applicant: FERRING PHARMACEUTICALS INC
Approved: Approved Prior to Jan 1, 1982 | RLD: Yes | RS: No | Type: DISCN